FAERS Safety Report 14526115 (Version 5)
Quarter: 2018Q2

REPORT INFORMATION
  Report Type: Spontaneous
  Country: FR (occurrence: FR)
  Receive Date: 20180213
  Receipt Date: 20180514
  Transmission Date: 20180711
  Serious: Yes (Hospitalization, Other)
  Sender: FDA-Public Use
  Company Number: FR-AUROBINDO-AUR-APL-2018-006787

PATIENT
  Age: 33 Year
  Sex: Male
  Weight: 61 kg

DRUGS (112)
  1. SALBUTAMOL [Suspect]
     Active Substance: ALBUTEROL
     Dosage: ()
     Route: 055
     Dates: start: 20170128, end: 20170201
  2. TEMODAL [Suspect]
     Active Substance: TEMOZOLOMIDE
     Route: 048
     Dates: start: 20170105
  3. CARMUSTINE [Concomitant]
     Active Substance: CARMUSTINE
     Indication: PRODUCT USED FOR UNKNOWN INDICATION
     Dosage: ()
     Route: 065
  4. MEDROL [Concomitant]
     Active Substance: METHYLPREDNISOLONE
     Dosage: UNK
     Route: 065
  5. LYRICA [Concomitant]
     Active Substance: PREGABALIN
     Dosage: 100 MILLIGRAM
     Route: 048
  6. URBANYL [Concomitant]
     Active Substance: CLOBAZAM
     Route: 048
  7. ZEBINIX [Concomitant]
     Active Substance: ESLICARBAZEPINE ACETATE
     Indication: PRODUCT USED FOR UNKNOWN INDICATION
     Dosage: 1.5 DOSAGE FORM
     Route: 048
  8. PROCARBAZINE [Concomitant]
     Active Substance: PROCARBAZINE
     Dosage: ()
     Route: 065
  9. ESOMEPRAZOLE [Concomitant]
     Active Substance: ESOMEPRAZOLE
     Indication: PRODUCT USED FOR UNKNOWN INDICATION
     Dosage: ()
     Route: 048
  10. ESOMEPRAZOLE [Concomitant]
     Active Substance: ESOMEPRAZOLE
     Dosage: ()
     Route: 048
  11. ESOMEPRAZOLE [Concomitant]
     Active Substance: ESOMEPRAZOLE
     Dosage: ()
     Route: 048
  12. ESOMEPRAZOLE [Concomitant]
     Active Substance: ESOMEPRAZOLE
     Dosage: ()
     Route: 048
  13. TEMODAL [Suspect]
     Active Substance: TEMOZOLOMIDE
     Dosage: ()
     Route: 065
  14. TEMODAL [Suspect]
     Active Substance: TEMOZOLOMIDE
     Dosage: ()
     Route: 065
  15. DIFFU K [Suspect]
     Active Substance: POTASSIUM CHLORIDE
     Indication: PRODUCT USED FOR UNKNOWN INDICATION
     Dosage: 1 DOSAGE FORM
     Route: 048
     Dates: start: 20170201
  16. DIFFU K [Suspect]
     Active Substance: POTASSIUM CHLORIDE
     Dosage: 1 DOSAGE FORM
     Route: 048
  17. DIFFU K [Suspect]
     Active Substance: POTASSIUM CHLORIDE
     Route: 048
     Dates: start: 20160201, end: 20160201
  18. AUGMENTIN [Concomitant]
     Active Substance: AMOXICILLIN\CLAVULANATE POTASSIUM
     Dosage: UNK
     Route: 065
  19. MEDROL [Concomitant]
     Active Substance: METHYLPREDNISOLONE
     Dosage: UNK
     Route: 065
  20. MEDROL [Concomitant]
     Active Substance: METHYLPREDNISOLONE
     Dosage: UNK
     Route: 065
  21. LAMALINE                           /00764901/ [Concomitant]
     Active Substance: ACETAMINOPHEN\BELLADONNA LEAF\CAFFEINE\OPIUM
     Indication: PRODUCT USED FOR UNKNOWN INDICATION
     Dosage: UNK (2 UG/LITRE) ()
     Route: 065
  22. LYRICA [Concomitant]
     Active Substance: PREGABALIN
     Indication: PRODUCT USED FOR UNKNOWN INDICATION
     Dosage: 100 MILLIGRAM
     Route: 048
  23. LYRICA [Concomitant]
     Active Substance: PREGABALIN
     Dosage: 100 MILLIGRAM
     Route: 048
  24. URBANYL [Concomitant]
     Active Substance: CLOBAZAM
     Dosage: 1 DOSAGE FORM
     Route: 048
  25. PROCARBAZINE [Concomitant]
     Active Substance: PROCARBAZINE
     Indication: PRODUCT USED FOR UNKNOWN INDICATION
     Dosage: ()
     Route: 065
  26. OFLOCET                            /00731801/ [Concomitant]
     Active Substance: OFLOXACIN
     Indication: PRODUCT USED FOR UNKNOWN INDICATION
     Dosage: 1 DOSAGE FORM
     Route: 031
     Dates: start: 20170128
  27. ESOMEPRAZOLE [Concomitant]
     Active Substance: ESOMEPRAZOLE
     Dosage: ()
     Route: 048
  28. ESOMEPRAZOLE [Concomitant]
     Active Substance: ESOMEPRAZOLE
     Dosage: ()
     Route: 048
  29. KEPPRA [Concomitant]
     Active Substance: LEVETIRACETAM
     Route: 048
  30. IPRATROPIUM [Suspect]
     Active Substance: IPRATROPIUM
     Indication: RESPIRATORY DISORDER
     Dosage: TIME TO ONSET: 4 DAY(S) ()
     Route: 055
  31. ATROVENT [Suspect]
     Active Substance: IPRATROPIUM BROMIDE
     Dosage: TIME TO ONSET: 4 DAY(S) ()
     Route: 055
  32. DIFFU K [Suspect]
     Active Substance: POTASSIUM CHLORIDE
     Dosage: UNK (1 UG/LITRE) ()
     Route: 048
     Dates: start: 20170201, end: 20170201
  33. AUGMENTIN [Concomitant]
     Active Substance: AMOXICILLIN\CLAVULANATE POTASSIUM
     Dosage: UNK
     Route: 065
  34. CARMUSTINE [Concomitant]
     Active Substance: CARMUSTINE
     Dosage: ()
     Route: 065
  35. MEDROL [Concomitant]
     Active Substance: METHYLPREDNISOLONE
     Indication: PRODUCT USED FOR UNKNOWN INDICATION
     Dosage: UNK
     Route: 065
  36. LYRICA [Concomitant]
     Active Substance: PREGABALIN
     Dosage: 100 MILLIGRAM
     Route: 048
  37. LYRICA [Concomitant]
     Active Substance: PREGABALIN
     Dosage: 100 MILLIGRAM
     Route: 048
  38. LYRICA [Concomitant]
     Active Substance: PREGABALIN
     Dosage: 100 MILLIGRAM
     Route: 048
  39. LYRICA [Concomitant]
     Active Substance: PREGABALIN
     Route: 048
  40. VINCRISTINE [Concomitant]
     Active Substance: VINCRISTINE
     Indication: PRODUCT USED FOR UNKNOWN INDICATION
     Dosage: ()
     Route: 065
  41. ESOMEPRAZOLE [Concomitant]
     Active Substance: ESOMEPRAZOLE
     Dosage: ()
     Route: 048
  42. KEPPRA [Concomitant]
     Active Substance: LEVETIRACETAM
     Route: 048
  43. KEPPRA [Concomitant]
     Active Substance: LEVETIRACETAM
     Route: 048
  44. KEPPRA [Concomitant]
     Active Substance: LEVETIRACETAM
     Route: 048
  45. KEPPRA [Concomitant]
     Active Substance: LEVETIRACETAM
     Route: 048
  46. IPRATROPIUM [Suspect]
     Active Substance: IPRATROPIUM
     Dosage: ()
     Route: 055
     Dates: start: 20170128, end: 20170201
  47. TEMODAL [Suspect]
     Active Substance: TEMOZOLOMIDE
     Indication: ASTROCYTOMA
     Dosage: 140 MG, UNK
     Route: 048
  48. TEMODAL [Suspect]
     Active Substance: TEMOZOLOMIDE
     Dosage: 140 MILLIGRAM
     Route: 048
     Dates: end: 20170105
  49. TEMODAL [Suspect]
     Active Substance: TEMOZOLOMIDE
     Dosage: ()
     Route: 065
  50. AUGMENTIN [Concomitant]
     Active Substance: AMOXICILLIN\CLAVULANATE POTASSIUM
     Indication: PRODUCT USED FOR UNKNOWN INDICATION
     Dosage: UNK
     Route: 065
     Dates: start: 20170128
  51. LYRICA [Concomitant]
     Active Substance: PREGABALIN
     Route: 048
  52. LYRICA [Concomitant]
     Active Substance: PREGABALIN
     Dosage: 100 MILLIGRAM
     Route: 048
  53. URBANYL [Concomitant]
     Active Substance: CLOBAZAM
     Dosage: 1 MCG/LITRE
     Route: 048
  54. VINCRISTINE [Concomitant]
     Active Substance: VINCRISTINE
     Dosage: ()
     Route: 065
  55. ESOMEPRAZOLE [Concomitant]
     Active Substance: ESOMEPRAZOLE
     Dosage: ()
     Route: 048
  56. LEVETIRACETAM. [Concomitant]
     Active Substance: LEVETIRACETAM
     Dosage: UNK
     Route: 065
  57. SALBUTAMOL [Suspect]
     Active Substance: ALBUTEROL
     Dosage: ()
     Route: 055
  58. TEMODAL [Suspect]
     Active Substance: TEMOZOLOMIDE
     Dosage: ()
     Route: 048
     Dates: start: 201604
  59. ATROVENT [Suspect]
     Active Substance: IPRATROPIUM BROMIDE
     Indication: RESPIRATORY DISORDER
     Dosage: TIME TO ONSET: 4 DAY(S) ()
     Route: 055
     Dates: start: 20170128, end: 20170201
  60. ATROVENT [Suspect]
     Active Substance: IPRATROPIUM BROMIDE
     Dosage: TIME TO ONSET: 4 DAY(S) ()
     Route: 055
  61. DIFFU K [Suspect]
     Active Substance: POTASSIUM CHLORIDE
     Dosage: 1 DOSAGE FORM
     Route: 048
  62. AUGMENTIN [Concomitant]
     Active Substance: AMOXICILLIN\CLAVULANATE POTASSIUM
     Dosage: UNK
     Route: 065
  63. AUGMENTIN [Concomitant]
     Active Substance: AMOXICILLIN\CLAVULANATE POTASSIUM
     Dosage: UNK
     Route: 065
  64. MEDROL [Concomitant]
     Active Substance: METHYLPREDNISOLONE
     Dosage: UNK
     Route: 065
  65. LAMALINE                           /00764901/ [Concomitant]
     Active Substance: ACETAMINOPHEN\BELLADONNA LEAF\CAFFEINE\OPIUM
     Dosage: 2 DOSAGE FORM, DAILY
     Route: 065
     Dates: end: 20170201
  66. LYRICA [Concomitant]
     Active Substance: PREGABALIN
     Route: 048
  67. LYRICA [Concomitant]
     Active Substance: PREGABALIN
     Dosage: 100 MILLIGRAM
     Route: 048
  68. URBANYL [Concomitant]
     Active Substance: CLOBAZAM
     Indication: PRODUCT USED FOR UNKNOWN INDICATION
     Dosage: 1 DOSAGE FORM
     Route: 048
  69. URBANYL [Concomitant]
     Active Substance: CLOBAZAM
     Dosage: UNK (1 UG/LITRE) ()
     Route: 048
  70. URBANYL [Concomitant]
     Active Substance: CLOBAZAM
     Dosage: 1 MCG/LITRE
     Route: 048
  71. URBANYL [Concomitant]
     Active Substance: CLOBAZAM
     Dosage: 1 DOSAGE FORM
     Route: 048
  72. URBANYL [Concomitant]
     Active Substance: CLOBAZAM
     Dosage: 1 DOSAGE FORM
     Route: 048
  73. URBANYL [Concomitant]
     Active Substance: CLOBAZAM
     Dosage: 1 DOSAGE FORM
     Route: 048
  74. ESOMEPRAZOLE [Concomitant]
     Active Substance: ESOMEPRAZOLE
     Dosage: ()
     Route: 048
  75. KEPPRA [Concomitant]
     Active Substance: LEVETIRACETAM
     Indication: PRODUCT USED FOR UNKNOWN INDICATION
     Dosage: 1000 MILLIGRAM
     Route: 048
  76. KEPPRA [Concomitant]
     Active Substance: LEVETIRACETAM
     Route: 048
  77. KEPPRA [Concomitant]
     Active Substance: LEVETIRACETAM
     Route: 048
  78. LEVETIRACETAM. [Concomitant]
     Active Substance: LEVETIRACETAM
     Dosage: ()
     Route: 065
  79. SALBUTAMOL [Suspect]
     Active Substance: ALBUTEROL
     Indication: RESPIRATORY DISORDER
     Dosage: ()
     Route: 055
  80. TEMODAL [Suspect]
     Active Substance: TEMOZOLOMIDE
     Dosage: 140 MILLIGRAM
     Route: 065
  81. TEMODAL [Suspect]
     Active Substance: TEMOZOLOMIDE
     Dosage: ()
     Route: 065
  82. TEMODAL [Suspect]
     Active Substance: TEMOZOLOMIDE
     Route: 048
     Dates: start: 201601, end: 20170105
  83. ROVAMYCINE                         /00074401/ [Suspect]
     Active Substance: SPIRAMYCIN
     Indication: PLEURISY
     Dosage: 1.5 IU, UNK
     Route: 042
     Dates: start: 20170128, end: 20170201
  84. ATROVENT [Suspect]
     Active Substance: IPRATROPIUM BROMIDE
     Dosage: TIME TO ONSET: 4 DAY(S) ()
     Route: 055
  85. SOLUPRED                           /00016201/ [Suspect]
     Active Substance: PREDNISOLONE
     Indication: RESPIRATORY DISORDER
     Dosage: 40 MILLIGRAM, DAILY
     Route: 048
     Dates: start: 20170128, end: 20170128
  86. AUGMENTIN [Concomitant]
     Active Substance: AMOXICILLIN\CLAVULANATE POTASSIUM
     Dosage: UNK
     Route: 065
  87. AUGMENTIN [Concomitant]
     Active Substance: AMOXICILLIN\CLAVULANATE POTASSIUM
     Dosage: UNK
     Route: 065
  88. MEDROL [Concomitant]
     Active Substance: METHYLPREDNISOLONE
     Dosage: UNK
     Route: 065
  89. URBANYL [Concomitant]
     Active Substance: CLOBAZAM
     Dosage: 1 DOSAGE FORM
     Route: 048
  90. ESOMEPRAZOLE [Concomitant]
     Active Substance: ESOMEPRAZOLE
     Dosage: ()
     Route: 048
  91. ESOMEPRAZOLE [Concomitant]
     Active Substance: ESOMEPRAZOLE
     Dosage: ()
     Route: 048
  92. KEPPRA [Concomitant]
     Active Substance: LEVETIRACETAM
     Dosage: 2000 MILLIGRAM
     Route: 048
  93. TEMODAL [Suspect]
     Active Substance: TEMOZOLOMIDE
     Dosage: ()
     Route: 048
     Dates: end: 201611
  94. ATROVENT [Suspect]
     Active Substance: IPRATROPIUM BROMIDE
     Dosage: TIME TO ONSET: 4 DAY(S) ()
     Route: 055
  95. ATROVENT [Suspect]
     Active Substance: IPRATROPIUM BROMIDE
     Dosage: TIME TO ONSET: 4 DAY(S) ()
     Route: 055
  96. MEDROL [Concomitant]
     Active Substance: METHYLPREDNISOLONE
     Dosage: UNK
     Route: 065
  97. LYRICA [Concomitant]
     Active Substance: PREGABALIN
     Route: 048
  98. URBANYL [Concomitant]
     Active Substance: CLOBAZAM
     Dosage: 1 DOSAGE FORM
     Route: 048
  99. OFLOCET                            /00731801/ [Concomitant]
     Active Substance: OFLOXACIN
     Dosage: UNK (1 UG/LITRE) ()
     Route: 031
     Dates: start: 20170128
  100. ESOMEPRAZOLE [Concomitant]
     Active Substance: ESOMEPRAZOLE
     Dosage: ()
     Route: 048
  101. ESOMEPRAZOLE [Concomitant]
     Active Substance: ESOMEPRAZOLE
     Dosage: ()
     Route: 048
  102. LEVETIRACETAM. [Concomitant]
     Active Substance: LEVETIRACETAM
     Indication: PRODUCT USED FOR UNKNOWN INDICATION
     Dosage: UNK
     Route: 065
  103. TEMODAL [Suspect]
     Active Substance: TEMOZOLOMIDE
     Dosage: ()
     Route: 065
     Dates: start: 201601
  104. TEMODAL [Suspect]
     Active Substance: TEMOZOLOMIDE
     Route: 048
  105. ATROVENT [Suspect]
     Active Substance: IPRATROPIUM BROMIDE
     Dosage: TIME TO ONSET: 4 DAY(S) ()
     Route: 055
  106. URBANYL [Concomitant]
     Active Substance: CLOBAZAM
     Route: 048
  107. URBANYL [Concomitant]
     Active Substance: CLOBAZAM
     Dosage: 1 DOSAGE FORM
     Route: 048
  108. ZEBINIX [Concomitant]
     Active Substance: ESLICARBAZEPINE ACETATE
     Dosage: UNK (1.5 UG/LITRE) ()
     Route: 048
  109. KEPPRA [Concomitant]
     Active Substance: LEVETIRACETAM
     Route: 048
  110. KEPPRA [Concomitant]
     Active Substance: LEVETIRACETAM
     Route: 048
  111. KEPPRA [Concomitant]
     Active Substance: LEVETIRACETAM
     Route: 048
  112. LEVETIRACETAM. [Concomitant]
     Active Substance: LEVETIRACETAM
     Dosage: UNK
     Route: 065

REACTIONS (2)
  - Cholestasis [Unknown]
  - Hepatocellular injury [Recovered/Resolved]

NARRATIVE: CASE EVENT DATE: 20170201
